FAERS Safety Report 15232223 (Version 1)
Quarter: 2018Q3

REPORT INFORMATION
  Report Type: Spontaneous
  Country: US (occurrence: US)
  Receive Date: 20180802
  Receipt Date: 20180802
  Transmission Date: 20181010
  Serious: No
  Sender: FDA-Public Use
  Company Number: US-PFIZER INC-2018309605

PATIENT
  Age: 90 Year
  Sex: Female

DRUGS (1)
  1. LYRICA [Suspect]
     Active Substance: PREGABALIN
     Indication: RADICULOPATHY
     Dosage: 25 MG, 1X/DAY (HS)

REACTIONS (5)
  - Cognitive disorder [Unknown]
  - Product use in unapproved indication [Unknown]
  - Fall [Unknown]
  - Dizziness [Unknown]
  - Memory impairment [Unknown]
